FAERS Safety Report 4297283-8 (Version None)
Quarter: 2004Q1

REPORT INFORMATION
  Report Type: 
  Country: None (occurrence: None)
  Receive Date: 20040213
  Receipt Date: 20040203
  Transmission Date: 20041129
  Serious: Yes (Death)
  Sender: FDA-Public Use
  Company Number: 2004-DE-00534GD

PATIENT
  Sex: Male

DRUGS (15)
  1. CYCLOPHOSPHAMIDE [Suspect]
     Indication: HODGKIN'S DISEASE
     Dosage: HIGH DOSE
  2. PREDNISONE [Suspect]
     Indication: HODGKIN'S DISEASE
     Dosage: 8 CYCLES OF ALTERNATING MOPP
  3. MELPHALAN (MELPHALAN) [Suspect]
     Indication: HODGKIN'S DISEASE
     Dosage: HIGH DOSE
  4. CYTARABINE [Suspect]
     Indication: HODGKIN'S DISEASE
  5. ETOPOSIDE [Suspect]
     Indication: HODGKIN'S DISEASE
     Dosage: HIGH DOSE
  6. AMIKACIN [Suspect]
     Indication: FEBRILE NEUTROPENIA
  7. CEFTAZIDIME SODIUM [Suspect]
     Indication: FEBRILE NEUTROPENIA
  8. FLUCONAZOLE [Suspect]
     Indication: FEBRILE NEUTROPENIA
  9. MECHLORETHAMINE [Suspect]
     Indication: HODGKIN'S DISEASE
     Dosage: 8 CYCLES OF ALTERNATING MOPP
  10. ONCOVIN [Suspect]
     Indication: HODGKIN'S DISEASE
     Dosage: 8 CYCLES OF ALTERNATING MOPP
  11. PROCARBAZINE (PROCARBAZINE) [Suspect]
     Indication: HODGKIN'S DISEASE
     Dosage: 8 CYCLES OF ALTERNATING MOPP
  12. ADRIAMYCIN (DOXORUBICIN) [Suspect]
     Indication: HODGKIN'S DISEASE
     Dosage: 8 CYCLES OF ALTERNATING MOPP
  13. BLEOMYCIN [Suspect]
     Indication: HODGKIN'S DISEASE
     Dosage: 8 CYCLES OF ALTERNATING MOPP
  14. VINBLASTINE SULFATE [Suspect]
     Indication: HODGKIN'S DISEASE
     Dosage: 8 CYCLES OF ALTERNATING MOPP
  15. DACARBAZINE [Suspect]
     Indication: HODGKIN'S DISEASE
     Dosage: 8 CYCLES OF ALTERNATING MOPP

REACTIONS (3)
  - DRUG TOXICITY [None]
  - HEPATIC FAILURE [None]
  - VANISHING BILE DUCT SYNDROME [None]
